FAERS Safety Report 8736340 (Version 2)
Quarter: 2012Q4

REPORT INFORMATION
  Report Type: 
  Country: BR (occurrence: BR)
  Receive Date: 20120822
  Receipt Date: 20121025
  Transmission Date: 20130627
  Serious: Yes (Hospitalization)
  Sender: FDA-Public Use
  Company Number: BR-ASTRAZENECA-2012SE57319

PATIENT
  Age: 72 Year
  Sex: Female
  Weight: 66 kg

DRUGS (6)
  1. CRESTOR [Suspect]
     Indication: BLOOD CHOLESTEROL INCREASED
     Route: 048
     Dates: end: 201203
  2. CRESTOR [Suspect]
     Indication: BLOOD CHOLESTEROL INCREASED
     Route: 048
  3. ATENOLOL [Suspect]
     Indication: HYPERTENSION
     Route: 048
     Dates: start: 201203
  4. BENICAR HCT [Suspect]
     Indication: HYPERTENSION
     Dosage: 10/12,5 MG DAILY
     Route: 048
     Dates: end: 201203
  5. SYNTHROID [Concomitant]
     Indication: HYPOTHYROIDISM
     Dosage: 88 MCG
     Route: 048
  6. DIGEPLUS [Concomitant]
     Indication: REFLUX GASTRITIS
     Route: 048

REACTIONS (4)
  - Angina pectoris [Recovered/Resolved]
  - Blood cholesterol increased [Recovered/Resolved]
  - Drug ineffective [Unknown]
  - Off label use [Not Recovered/Not Resolved]
